FAERS Safety Report 25880719 (Version 1)
Quarter: 2025Q4

REPORT INFORMATION
  Report Type: Spontaneous
  Country: EU (occurrence: EU)
  Receive Date: 20251004
  Receipt Date: 20251004
  Transmission Date: 20260118
  Serious: Yes (Other)
  Sender: ACCORD
  Company Number: None

PATIENT
  Age: 69 Year
  Sex: Female

DRUGS (4)
  1. CARBOPLATIN [Suspect]
     Active Substance: CARBOPLATIN
     Indication: Neoplasm recurrence
     Dosage: FIRST CYCLE STARTED ON 22/04/2025. MEDICATION EXPIRE DATE 30/09/26
     Dates: start: 20250819, end: 20250819
  2. PACLITAXEL [Concomitant]
     Active Substance: PACLITAXEL
     Indication: Neoplasm recurrence
     Dosage: FIRST CYCLE STARTED ON 22/04/2025. MEDICINE EXPIRY DATE 31/03/2026
     Dates: start: 20250819, end: 20250819
  3. LEVOTHYROXINE SODIUM [Concomitant]
     Active Substance: LEVOTHYROXINE SODIUM
  4. PANTOPRAZOLE [Concomitant]
     Active Substance: PANTOPRAZOLE

REACTIONS (2)
  - Flushing [Recovered/Resolved]
  - Pruritus [Recovered/Resolved]

NARRATIVE: CASE EVENT DATE: 20250819
